FAERS Safety Report 13115176 (Version 1)
Quarter: 2017Q1

REPORT INFORMATION
  Report Type: Spontaneous
  Country: US (occurrence: US)
  Receive Date: 20170113
  Receipt Date: 20170113
  Transmission Date: 20170428
  Serious: Yes (Other)
  Sender: FDA-Public Use
  Company Number: US-GLAXOSMITHKLINE-US2017GSK003970

PATIENT
  Age: 74 Year
  Sex: Female

DRUGS (14)
  1. AMITRIPTYLINE [Suspect]
     Active Substance: AMITRIPTYLINE
     Indication: PSYCHOTIC DISORDER
  2. WARFARIN [Concomitant]
     Active Substance: WARFARIN
     Indication: PULMONARY EMBOLISM
     Dosage: 6 MG, QD
  3. MIRTAZAPINE. [Suspect]
     Active Substance: MIRTAZAPINE
  4. BUPROPION. [Suspect]
     Active Substance: BUPROPION
     Indication: PSYCHOTIC DISORDER
  5. TRAZODONE [Concomitant]
     Active Substance: TRAZODONE HYDROCHLORIDE
     Dosage: 50 MG, AT BEDTIME
  6. ILOPERIDONE [Suspect]
     Active Substance: ILOPERIDONE
     Indication: PSYCHOTIC DISORDER
  7. METHIMAZOLE. [Concomitant]
     Active Substance: METHIMAZOLE
     Indication: PRODUCT USED FOR UNKNOWN INDICATION
     Dosage: 30 MG, BID
  8. OLANZAPINE. [Suspect]
     Active Substance: OLANZAPINE
     Indication: PSYCHOTIC DISORDER
  9. ESCITALOPRAM [Suspect]
     Active Substance: ESCITALOPRAM OXALATE
     Indication: PSYCHOTIC DISORDER
  10. PROPRANOLOL [Concomitant]
     Active Substance: PROPRANOLOL HYDROCHLORIDE
     Indication: PRODUCT USED FOR UNKNOWN INDICATION
     Dosage: 160 MG, QD
  11. LORAZEPAM. [Suspect]
     Active Substance: LORAZEPAM
  12. QUETIAPINE. [Concomitant]
     Active Substance: QUETIAPINE
     Dosage: 50 MG, AT BEDTIME
  13. ALPRAZOLAM. [Suspect]
     Active Substance: ALPRAZOLAM
     Indication: PSYCHOTIC DISORDER
  14. CLONAZEPAM. [Concomitant]
     Active Substance: CLONAZEPAM
     Indication: PSYCHOTIC DISORDER
     Dosage: 1 MG, BID

REACTIONS (3)
  - Therapy non-responder [Unknown]
  - Electrocardiogram QT prolonged [Unknown]
  - Drug ineffective [Unknown]
